FAERS Safety Report 4868055-8 (Version None)
Quarter: 2005Q4

REPORT INFORMATION
  Report Type: 
  Country: None (occurrence: None)
  Receive Date: 20051227
  Receipt Date: 20051227
  Transmission Date: 20060501
  Serious: Yes (Other)
  Sender: FDA-Public Use
  Company Number: None

PATIENT
  Age: 55 Year
  Sex: Female

DRUGS (2)
  1. BYETTA [Suspect]
     Indication: DIABETES MELLITUS NON-INSULIN-DEPENDENT
     Dosage: 5 MCG ACB AND ACS SUB Q
     Route: 058
     Dates: start: 20051109, end: 20051130
  2. BYETTA [Suspect]
     Indication: OBESITY
     Dosage: 5 MCG ACB AND ACS SUB Q
     Route: 058
     Dates: start: 20051109, end: 20051130

REACTIONS (1)
  - RASH [None]
